FAERS Safety Report 5514970-1 (Version None)
Quarter: 2007Q4

REPORT INFORMATION
  Report Type: 
  Country: None (occurrence: None)
  Receive Date: 20071113
  Receipt Date: 20061113
  Transmission Date: 20080405
  Serious: No
  Sender: FDA-Public Use
  Company Number: A0624903A

PATIENT
  Age: 55 Year
  Sex: Male
  Weight: 110 kg

DRUGS (6)
  1. COREG [Suspect]
     Indication: HYPERTENSION
     Dosage: 3.125MG TWICE PER DAY
     Route: 048
     Dates: start: 20060615, end: 20061001
  2. ACETYLSALICYLIC ACID SRT [Concomitant]
  3. CARDIZEM [Concomitant]
  4. DIOVAN [Concomitant]
  5. VITAMINS [Concomitant]
  6. NAPROSYN [Concomitant]

REACTIONS (1)
  - WEIGHT INCREASED [None]
